FAERS Safety Report 16770403 (Version 1)
Quarter: 2019Q3

REPORT INFORMATION
  Report Type: Spontaneous
  Country: TW (occurrence: TW)
  Receive Date: 20190904
  Receipt Date: 20190904
  Transmission Date: 20191005
  Serious: Yes (Death, Other)
  Sender: FDA-Public Use
  Company Number: TW-BRISTOL-MYERS SQUIBB COMPANY-BMS-2019-085899

PATIENT
  Age: 32 Year
  Sex: Male
  Weight: 62 kg

DRUGS (2)
  1. OPDIVO [Suspect]
     Active Substance: NIVOLUMAB
     Indication: SMALL CELL LUNG CANCER
     Dosage: 1 MILLIGRAM/KILOGRAM, Q2WK
     Route: 042
     Dates: start: 20170509
  2. YERVOY [Suspect]
     Active Substance: IPILIMUMAB
     Indication: SMALL CELL LUNG CANCER
     Dosage: 1 MILLIGRAM/KILOGRAM, Q2WK
     Route: 042
     Dates: start: 20170510, end: 20170523

REACTIONS (6)
  - Respiratory failure [Fatal]
  - Off label use [Unknown]
  - Haematochezia [Unknown]
  - Haemoglobin decreased [Unknown]
  - Intentional product use issue [Unknown]
  - Fatigue [Unknown]

NARRATIVE: CASE EVENT DATE: 20170512
